FAERS Safety Report 16972221 (Version 2)
Quarter: 2019Q4

REPORT INFORMATION
  Report Type: Spontaneous
  Country: US (occurrence: US)
  Receive Date: 20191029
  Receipt Date: 20191108
  Transmission Date: 20200122
  Serious: No
  Sender: FDA-Public Use
  Company Number: US-ACTELION-A-US2019-197390

PATIENT
  Sex: Female
  Weight: 43.54 kg

DRUGS (1)
  1. VELETRI [Suspect]
     Active Substance: EPOPROSTENOL
     Indication: PULMONARY HYPERTENSION
     Dosage: 31.06 NG/KG, PER MIN
     Route: 042

REACTIONS (2)
  - Tooth extraction [Unknown]
  - Gout [Unknown]
